FAERS Safety Report 16269403 (Version 1)
Quarter: 2019Q2

REPORT INFORMATION
  Report Type: Spontaneous
  Country: US (occurrence: US)
  Receive Date: 20190503
  Receipt Date: 20190503
  Transmission Date: 20190711
  Serious: Yes (Other)
  Sender: FDA-Public Use
  Company Number: US-TEVA-2019-US-1044555

PATIENT
  Age: 75 Year
  Sex: Female

DRUGS (2)
  1. ALBUTEROL SULFATE HFA TEVA [Suspect]
     Active Substance: ALBUTEROL SULFATE
     Indication: ASTHMA
     Dates: start: 20190328, end: 20190328
  2. PROVENTIL [Concomitant]
     Active Substance: ALBUTEROL

REACTIONS (6)
  - Choking [Recovered/Resolved]
  - Hypersensitivity [Recovered/Resolved]
  - Cough [Recovered/Resolved]
  - Tremor [Recovered/Resolved]
  - Product substitution issue [Unknown]
  - Adverse event [Recovered/Resolved]

NARRATIVE: CASE EVENT DATE: 20190328
